FAERS Safety Report 7569656-9 (Version None)
Quarter: 2011Q2

REPORT INFORMATION
  Report Type: 
  Country: None (occurrence: None)
  Receive Date: 20110621
  Receipt Date: 20110621
  Transmission Date: 20111010
  Serious: Yes (Other)
  Sender: FDA-Public Use
  Company Number: None

PATIENT
  Sex: Female
  Weight: 108.8633 kg

DRUGS (6)
  1. PROAIR HFA [Suspect]
     Indication: ASTHMA
     Dosage: 2 PUFFS 4HRS
     Dates: start: 20110523
  2. PROAIR HFA [Suspect]
     Indication: COUGH
     Dosage: 2 PUFFS 4HRS
     Dates: start: 20110523
  3. PROAIR HFA [Suspect]
     Indication: ASTHMA
     Dosage: 2 PUFFS 4HRS
     Dates: start: 20110527
  4. PROAIR HFA [Suspect]
     Indication: COUGH
     Dosage: 2 PUFFS 4HRS
     Dates: start: 20110527
  5. HUMULIN AN [Concomitant]
  6. OMERAPROZOLE [Concomitant]

REACTIONS (1)
  - FUNGAL INFECTION [None]
